FAERS Safety Report 9487563 (Version 2)
Quarter: 2013Q3

REPORT INFORMATION
  Report Type: Spontaneous
  Country: US (occurrence: US)
  Receive Date: 20130725
  Receipt Date: 20130725
  Transmission Date: 20140515
  Serious: Yes (Other)
  Sender: FDA-Public Use
  Company Number: US-GLAXOSMITHKLINE-A0815192A

PATIENT
  Sex: Male

DRUGS (4)
  1. AVANDIA [Suspect]
     Indication: DIABETES MELLITUS
     Dosage: 8MG PER DAY
     Route: 048
     Dates: start: 19990924, end: 2006
  2. AVANDARYL [Suspect]
     Indication: DIABETES MELLITUS
     Dosage: 1TAB TWICE PER DAY
     Route: 048
     Dates: start: 2006, end: 2010
  3. MOTRIN [Concomitant]
     Indication: JOINT INJURY
     Dates: start: 1990, end: 200202
  4. VIOXX [Concomitant]
     Indication: JOINT INJURY
     Dates: start: 200202

REACTIONS (2)
  - Cardiac failure congestive [Unknown]
  - Macular oedema [Unknown]
